FAERS Safety Report 4914934-2 (Version None)
Quarter: 2006Q1

REPORT INFORMATION
  Report Type: 
  Country: None (occurrence: None)
  Receive Date: 20060215
  Receipt Date: 20060215
  Transmission Date: 20060701
  Serious: Yes (Hospitalization)
  Sender: FDA-Public Use
  Company Number: None

PATIENT
  Sex: Male
  Weight: 107.9561 kg

DRUGS (3)
  1. AVELOX [Suspect]
     Indication: ANTI-INFECTIVE THERAPY
     Dosage: PO [PRIOR TO ADMISSION]
     Route: 048
  2. NEXIUM [Concomitant]
  3. PAXIL [Concomitant]

REACTIONS (4)
  - BURNING SENSATION [None]
  - HYPERVENTILATION [None]
  - LOSS OF CONSCIOUSNESS [None]
  - PRURITUS [None]
